FAERS Safety Report 8181547-1 (Version None)
Quarter: 2012Q1

REPORT INFORMATION
  Report Type: 
  Country: None (occurrence: None)
  Receive Date: 20120302
  Receipt Date: 20120221
  Transmission Date: 20120608
  Serious: Yes (Other)
  Sender: FDA-Public Use
  Company Number: US-MYLANLABS-2012S1004094

PATIENT
  Age: 46 Year
  Sex: Female

DRUGS (8)
  1. PERCOCET [Concomitant]
     Route: 048
  2. REQUIP [Concomitant]
     Route: 048
  3. ZOLOFT [Concomitant]
     Route: 048
  4. AMBIEN [Concomitant]
     Route: 048
  5. TRAMADOL HYDROCHLORIDE [Suspect]
     Indication: PAIN
     Route: 048
     Dates: start: 20090101, end: 20110101
  6. KLONOPIN [Concomitant]
     Route: 048
  7. PHENERGAN [Concomitant]
     Route: 048
  8. NORFLEX [Concomitant]
     Route: 048

REACTIONS (4)
  - PETIT MAL EPILEPSY [None]
  - TOOTH INJURY [None]
  - LOSS OF CONSCIOUSNESS [None]
  - FATIGUE [None]
